FAERS Safety Report 7957194-0 (Version None)
Quarter: 2011Q4

REPORT INFORMATION
  Report Type: 
  Country: None (occurrence: None)
  Receive Date: 20111205
  Receipt Date: 20111125
  Transmission Date: 20120403
  Serious: Yes (Hospitalization)
  Sender: FDA-Public Use
  Company Number: US-BAYER-201033121NA

PATIENT
  Age: 45 Year
  Sex: Female
  Weight: 85.261 kg

DRUGS (6)
  1. FLOMAX [Concomitant]
  2. DROSPIRENONE AND ETHINYL ESTRADIOL [Suspect]
     Indication: CONTRACEPTION
     Dosage: UNK
     Route: 048
     Dates: start: 20080701, end: 20090201
  3. YASMIN [Suspect]
     Indication: CONTRACEPTION
     Dosage: UNK
     Dates: start: 20030401, end: 20080601
  4. VENLAFAXINE [Concomitant]
  5. KETOROLAC TROMETHAMINE [Concomitant]
  6. FLUCONAZOLE [Concomitant]

REACTIONS (4)
  - DEEP VEIN THROMBOSIS [None]
  - ANXIETY [None]
  - DEPRESSION [None]
  - PULMONARY EMBOLISM [None]
